FAERS Safety Report 7272891-0 (Version None)
Quarter: 2011Q1

REPORT INFORMATION
  Report Type: 
  Country: None (occurrence: None)
  Receive Date: 20110203
  Receipt Date: 20110131
  Transmission Date: 20110831
  Serious: Yes (Other)
  Sender: FDA-Public Use
  Company Number: US-PFIZER INC-2011022847

PATIENT
  Sex: Female
  Weight: 81.6 kg

DRUGS (3)
  1. VALIUM [Concomitant]
     Indication: DEPRESSION
     Dosage: 5 MG, AS NEEDED
     Route: 048
  2. CHANTIX [Suspect]
     Indication: SMOKING CESSATION THERAPY
     Dosage: 0.5 MG, 1X/DAY
     Route: 048
     Dates: start: 20100101, end: 20101201
  3. LIPITOR [Concomitant]
     Indication: BLOOD CHOLESTEROL INCREASED
     Dosage: 50 MG, 1X/DAY
     Route: 048

REACTIONS (10)
  - BEDRIDDEN [None]
  - SUICIDAL IDEATION [None]
  - GAIT DISTURBANCE [None]
  - NIGHTMARE [None]
  - HEADACHE [None]
  - AMNESIA [None]
  - WEIGHT INCREASED [None]
  - DIZZINESS [None]
  - GASTRIC DISORDER [None]
  - NAUSEA [None]
